FAERS Safety Report 14283031 (Version 2)
Quarter: 2017Q4

REPORT INFORMATION
  Report Type: Spontaneous
  Country: US (occurrence: US)
  Receive Date: 20171213
  Receipt Date: 20171219
  Transmission Date: 20180321
  Serious: No
  Sender: FDA-Public Use
  Company Number: US-TEVA-2017-US-827165

PATIENT
  Age: 64 Year
  Sex: Male
  Weight: 73 kg

DRUGS (5)
  1. METOPROLOL. [Concomitant]
     Active Substance: METOPROLOL
  2. VIT. D [Concomitant]
  3. ADVAIR HFA [Concomitant]
     Active Substance: FLUTICASONE PROPIONATE\SALMETEROL XINAFOATE
  4. SIMVASTATIN. [Concomitant]
     Active Substance: SIMVASTATIN
     Indication: BLOOD CHOLESTEROL
  5. PROAIR HFA [Suspect]
     Active Substance: ALBUTEROL SULFATE
     Indication: ASTHMA
     Dosage: TWO PUFFS EVERY SIX HOURS
     Dates: start: 201708, end: 20171113

REACTIONS (10)
  - Feeling abnormal [Unknown]
  - Headache [Recovered/Resolved]
  - Drug ineffective [Unknown]
  - Vitamin D decreased [Not Recovered/Not Resolved]
  - Confusional state [Unknown]
  - Thinking abnormal [Unknown]
  - Bradyphrenia [Unknown]
  - Restlessness [Not Recovered/Not Resolved]
  - Wheezing [Unknown]
  - Nightmare [Unknown]

NARRATIVE: CASE EVENT DATE: 201708
